FAERS Safety Report 19461339 (Version 1)
Quarter: 2021Q2

REPORT INFORMATION
  Report Type: Spontaneous
  Country: GB (occurrence: GB)
  Receive Date: 20210625
  Receipt Date: 20210625
  Transmission Date: 20210717
  Serious: Yes (Other)
  Sender: FDA-Public Use
  Company Number: GB-ACCORD-229360

PATIENT
  Age: 50 Year
  Sex: Female
  Weight: 62.6 kg

DRUGS (8)
  1. ALLOPURINOL. [Concomitant]
     Active Substance: ALLOPURINOL
     Dosage: MORNING
  2. AMITRIPTYLINE [Suspect]
     Active Substance: AMITRIPTYLINE
     Indication: DEPRESSION
     Dosage: AT NIGHT
     Route: 048
     Dates: end: 20210607
  3. LANSOPRAZOLE. [Concomitant]
     Active Substance: LANSOPRAZOLE
     Dosage: MORNING
  4. IRON [Concomitant]
     Active Substance: IRON
  5. ALPHOSYL 2 IN 1 [Concomitant]
  6. CETRABEN EMOLLIENT CREAM [Concomitant]
  7. THIAMINE. [Concomitant]
     Active Substance: THIAMINE
  8. DOVOBET [Concomitant]
     Active Substance: BETAMETHASONE\CALCIPOTRIENE
     Indication: PSORIASIS
     Dosage: APPLY BD WHEN PSORIASIS ACTIVE

REACTIONS (1)
  - Electrocardiogram QT prolonged [Recovered/Resolved]

NARRATIVE: CASE EVENT DATE: 20210601
